FAERS Safety Report 5692276-8 (Version None)
Quarter: 2008Q2

REPORT INFORMATION
  Report Type: 
  Country: None (occurrence: None)
  Receive Date: 20080402
  Receipt Date: 20080325
  Transmission Date: 20081010
  Serious: Yes (Hospitalization)
  Sender: FDA-Public Use
  Company Number: CH-PFIZER INC-2008026792

PATIENT
  Sex: Male

DRUGS (11)
  1. SERTRALINE [Suspect]
     Dosage: DAILY DOSE:100MG
     Route: 048
  2. GABAPENTIN [Interacting]
     Indication: EPILEPSY
     Route: 048
  3. BUPRENORPHINE HCL [Interacting]
     Indication: PAIN
     Route: 060
     Dates: start: 20080112, end: 20080119
  4. KEPPRA [Interacting]
     Indication: EPILEPSY
     Dosage: DAILY DOSE:750MG
     Route: 048
  5. SIMVASTATIN [Concomitant]
     Dosage: DAILY DOSE:20MG
     Route: 048
  6. DAFALGAN [Concomitant]
     Route: 048
  7. SINTROM [Concomitant]
     Indication: ATRIAL FIBRILLATION
     Route: 048
  8. SINTROM [Concomitant]
     Indication: ATRIAL FLUTTER
  9. ENATEC [Concomitant]
     Dosage: DAILY DOSE:10MG
     Route: 048
  10. DUPHALAC [Concomitant]
     Route: 048
  11. EMODELLA [Concomitant]
     Route: 048

REACTIONS (4)
  - DRUG INTERACTION [None]
  - PNEUMONIA ASPIRATION [None]
  - SEPTIC SHOCK [None]
  - SOMNOLENCE [None]
